FAERS Safety Report 8132882-4 (Version None)
Quarter: 2012Q1

REPORT INFORMATION
  Report Type: 
  Country: None (occurrence: None)
  Receive Date: 20120208
  Receipt Date: 20120123
  Transmission Date: 20120608
  Serious: Yes (Death)
  Sender: FDA-Public Use
  Company Number: 2012010172

PATIENT
  Age: 70 Year
  Sex: Female

DRUGS (4)
  1. SUTRIL (5 MILLIGRAM, TABLETS) (TORASEMIDE) [Suspect]
     Dosage: ORAL
     Route: 048
     Dates: start: 20110623, end: 20120118
  2. MULTAQ [Suspect]
     Indication: ATRIAL FIBRILLATION
     Dosage: 2 TABLETS/DAY,ORAL
     Route: 048
     Dates: start: 20110623, end: 20120118
  3. RAMIPRIL [Suspect]
     Dosage: ORAL
     Route: 048
     Dates: start: 20110623, end: 20120118
  4. SINTROM [Suspect]
     Dosage: ORAL
     Route: 048
     Dates: start: 20110623, end: 20120118

REACTIONS (1)
  - RESUSCITATION [None]
